FAERS Safety Report 19820765 (Version 2)
Quarter: 2021Q4

REPORT INFORMATION
  Report Type: Spontaneous
  Country: US (occurrence: US)
  Receive Date: 20210913
  Receipt Date: 20211111
  Transmission Date: 20220303
  Serious: Yes (Hospitalization, Other)
  Sender: FDA-Public Use
  Company Number: US-NOVARTISPH-NVSC2021US204469

PATIENT
  Sex: Male

DRUGS (2)
  1. PROMACTA [Suspect]
     Active Substance: ELTROMBOPAG OLAMINE
     Indication: Aplastic anaemia
     Dosage: 25 MG, QD (DAILY) (STRENGTH: 25 MG)
     Route: 048
     Dates: start: 202107
  2. PROMACTA [Suspect]
     Active Substance: ELTROMBOPAG OLAMINE
     Dosage: 75 MG, QD (DAILY) (STRENGTH: 75 MG)
     Route: 048
     Dates: start: 202108

REACTIONS (2)
  - Oral infection [Unknown]
  - Infection susceptibility increased [Unknown]
